FAERS Safety Report 9517388 (Version 1)
Quarter: 2013Q3

REPORT INFORMATION
  Report Type: Spontaneous
  Country: US (occurrence: US)
  Receive Date: 20130911
  Receipt Date: 20130911
  Transmission Date: 20140515
  Serious: Yes (Hospitalization)
  Sender: FDA-Public Use
  Company Number: CHPA2013US013961

PATIENT
  Age: 57 Year
  Sex: Male

DRUGS (2)
  1. CONTROL PLP [Suspect]
     Indication: SMOKING CESSATION THERAPY
     Dosage: 21 MG, UNK
     Route: 062
     Dates: start: 2012, end: 2012
  2. CONTROL PLP [Suspect]
     Dosage: UNK, UNK
     Route: 062
     Dates: start: 201308

REACTIONS (2)
  - Cerebrovascular accident [Recovering/Resolving]
  - Lethargy [Recovering/Resolving]
